FAERS Safety Report 15996572 (Version 2)
Quarter: 2019Q1

REPORT INFORMATION
  Report Type: Spontaneous
  Country: ES (occurrence: ES)
  Receive Date: 20190222
  Receipt Date: 20190225
  Transmission Date: 20190418
  Serious: Yes (Life-Threatening, Other)
  Sender: FDA-Public Use
  Company Number: ES-009507513-1902ESP005901

PATIENT
  Sex: Female
  Weight: 64 kg

DRUGS (1)
  1. IMPLANON [Suspect]
     Active Substance: ETONOGESTREL
     Indication: CONTRACEPTION
     Dosage: 1 IMPLANT, EVERY 3 YEARS
     Route: 058
     Dates: start: 20160715

REACTIONS (5)
  - Pregnancy with implant contraceptive [Recovered/Resolved]
  - Ectopic pregnancy under hormonal contraception [Recovered/Resolved]
  - Amenorrhoea [Unknown]
  - Menstrual disorder [Unknown]
  - Abortion of ectopic pregnancy [Recovered/Resolved]

NARRATIVE: CASE EVENT DATE: 20190122
